FAERS Safety Report 6988328-2 (Version None)
Quarter: 2010Q3

REPORT INFORMATION
  Report Type: 
  Country: None (occurrence: None)
  Receive Date: 20100916
  Receipt Date: 20100908
  Transmission Date: 20110219
  Serious: Yes (Other)
  Sender: FDA-Public Use
  Company Number: US-JNJFOC-20100305325

PATIENT
  Sex: Male

DRUGS (4)
  1. LEVAQUIN [Suspect]
     Indication: PNEUMONIA
     Route: 048
  2. LEVAQUIN [Suspect]
     Indication: BRONCHITIS
     Route: 048
  3. LEVAQUIN [Suspect]
     Indication: RESPIRATORY TRACT INFECTION
     Route: 048
  4. CIPROFLOXACIN [Suspect]
     Indication: INFECTION
     Route: 065

REACTIONS (6)
  - ANXIETY [None]
  - ARTHRITIS [None]
  - DEPRESSION [None]
  - MENISCUS LESION [None]
  - TENDON RUPTURE [None]
  - TENDONITIS [None]
